FAERS Safety Report 8082053-5 (Version None)
Quarter: 2012Q1

REPORT INFORMATION
  Report Type: 
  Country: None (occurrence: None)
  Receive Date: 20120127
  Receipt Date: 20110228
  Transmission Date: 20120608
  Serious: No
  Sender: FDA-Public Use
  Company Number: US-ABBOTT-11P-163-0708004-00

PATIENT
  Age: 26 Year
  Sex: Male

DRUGS (2)
  1. AZATHIOPRINE [Concomitant]
     Indication: CROHN'S DISEASE
  2. HUMIRA [Suspect]
     Indication: CROHN'S DISEASE
     Dosage: SECONDARY LOADING DOSE
     Dates: start: 20110210

REACTIONS (1)
  - HUNGER [None]
